FAERS Safety Report 5191448-9 (Version None)
Quarter: 2006Q4

REPORT INFORMATION
  Report Type: 
  Country: None (occurrence: None)
  Receive Date: 20061226
  Receipt Date: 20060406
  Transmission Date: 20070319
  Serious: Yes (Hospitalization)
  Sender: FDA-Public Use
  Company Number: FR-MERCK-0604USA01171

PATIENT
  Age: 85 Year
  Sex: Male

DRUGS (2)
  1. MODURETIC 5-50 [Suspect]
     Route: 048
     Dates: start: 20050101, end: 20060211
  2. MODURETIC 5-50 [Suspect]
     Route: 048
     Dates: start: 20060215, end: 20060221

REACTIONS (5)
  - ANAEMIA [None]
  - CONFUSIONAL STATE [None]
  - FALL [None]
  - GASTROINTESTINAL ULCER HAEMORRHAGE [None]
  - HYPONATRAEMIA [None]
